FAERS Safety Report 7953644-4 (Version None)
Quarter: 2011Q4

REPORT INFORMATION
  Report Type: 
  Country: None (occurrence: None)
  Receive Date: 20111129
  Receipt Date: 20111114
  Transmission Date: 20120403
  Serious: Yes (Other)
  Sender: FDA-Public Use
  Company Number: 2011P1010875

PATIENT
  Age: 29 Year
  Sex: Male

DRUGS (2)
  1. BEVACIZUMAB (NO PREF. NAME) [Suspect]
     Indication: GLIOBLASTOMA
     Dosage: 10 MG/KG;Q2W
  2. IRINOTECAN (NO PREF. NAME) [Suspect]
     Indication: GLIOBLASTOMA
     Dosage: 10 MG/KG;Q2W

REACTIONS (2)
  - SKIN STRIAE [None]
  - SKIN NECROSIS [None]
